FAERS Safety Report 18143445 (Version 2)
Quarter: 2020Q3

REPORT INFORMATION
  Report Type: Spontaneous
  Country: US (occurrence: US)
  Receive Date: 20200812
  Receipt Date: 20200902
  Transmission Date: 20201103
  Serious: Yes (Other)
  Sender: FDA-Public Use
  Company Number: US-RIGEL PHARMACEUTICALS, INC.-2020FOS000277

PATIENT
  Sex: Male

DRUGS (2)
  1. TAVALISSE [Suspect]
     Active Substance: FOSTAMATINIB
     Dosage: 100 MG, BID
     Route: 048
     Dates: start: 201902
  2. TAVALISSE [Suspect]
     Active Substance: FOSTAMATINIB
     Indication: IMMUNE THROMBOCYTOPENIA
     Dosage: 100 MG, BID
     Route: 048
     Dates: start: 201902

REACTIONS (9)
  - Seasonal allergy [Unknown]
  - Bone pain [Unknown]
  - Laboratory test abnormal [Unknown]
  - Pain in jaw [Unknown]
  - Bone loss [None]
  - Osteonecrosis [Unknown]
  - Dental caries [Unknown]
  - Arthralgia [Unknown]
  - Tooth loss [Unknown]

NARRATIVE: CASE EVENT DATE: 2020
